FAERS Safety Report 24191548 (Version 2)
Quarter: 2024Q3

REPORT INFORMATION
  Report Type: Report from Study
  Country: CA (occurrence: CA)
  Receive Date: 20240808
  Receipt Date: 20240905
  Transmission Date: 20241016
  Serious: Yes (Hospitalization)
  Sender: JOHNSON AND JOHNSON
  Company Number: CA-JNJFOC-20240723817

PATIENT
  Age: 61 Year
  Sex: Male

DRUGS (1)
  1. STELARA [Suspect]
     Active Substance: USTEKINUMAB
     Indication: Crohn^s disease
     Route: 058

REACTIONS (4)
  - Asthenia [Unknown]
  - Intestinal obstruction [Unknown]
  - Hospitalisation [Unknown]
  - Product administration error [Unknown]

NARRATIVE: CASE EVENT DATE: 20240101
